FAERS Safety Report 20115758 (Version 2)
Quarter: 2021Q4

REPORT INFORMATION
  Report Type: Spontaneous
  Country: US (occurrence: US)
  Receive Date: 20211126
  Receipt Date: 20211210
  Transmission Date: 20220303
  Serious: Yes (Death, Other)
  Sender: FDA-Public Use
  Company Number: US-BIOVITRUM-2021US11259

PATIENT
  Sex: Male

DRUGS (15)
  1. SYNAGIS [Suspect]
     Active Substance: PALIVIZUMAB
     Indication: Antiviral prophylaxis
     Route: 030
     Dates: start: 202110
  2. SYNAGIS [Suspect]
     Active Substance: PALIVIZUMAB
     Dosage: 100MG/1ML, 50MG/0.5 ML
     Route: 030
     Dates: start: 20211110
  3. FERROUS SULFATE [Concomitant]
     Active Substance: FERROUS SULFATE
  4. POTASSIUM, SODIUM PHOSPHATES [Concomitant]
  5. SYNTHROID [Concomitant]
     Active Substance: LEVOTHYROXINE SODIUM
  6. CARNITOR SF [Concomitant]
     Active Substance: LEVOCARNITINE
  7. IOPIDINE [Concomitant]
     Active Substance: APRACLONIDINE HYDROCHLORIDE
  8. TIMOPTIC [Concomitant]
     Active Substance: TIMOLOL MALEATE
  9. ROCALTROL [Concomitant]
     Active Substance: CALCITRIOL
  10. KENALOG [Concomitant]
     Active Substance: TRIAMCINOLONE ACETONIDE
  11. PROVENTIL [Concomitant]
     Active Substance: ALBUTEROL
  12. VIT D 2 [Concomitant]
  13. PULMICORT TURBUHALER [Concomitant]
     Active Substance: BUDESONIDE
  14. TRUSOPT [Concomitant]
     Active Substance: DORZOLAMIDE HYDROCHLORIDE
  15. CORTEF [Concomitant]
     Active Substance: HYDROCORTISONE

REACTIONS (2)
  - Respiratory disorder [Fatal]
  - Respiratory failure [Fatal]
